FAERS Safety Report 5880145-X (Version None)
Quarter: 2008Q3

REPORT INFORMATION
  Report Type: 
  Country: None (occurrence: None)
  Receive Date: 20080912
  Receipt Date: 20080831
  Transmission Date: 20090109
  Serious: Yes (Hospitalization, Other)
  Sender: FDA-Public Use
  Company Number: US-PFIZER INC-2008073724

PATIENT
  Sex: Female
  Weight: 77 kg

DRUGS (34)
  1. CHANTIX [Suspect]
     Indication: SMOKING CESSATION THERAPY
     Dates: start: 20080601, end: 20080601
  2. ACTONEL [Concomitant]
  3. ADVAIR DISKUS 100/50 [Concomitant]
  4. ACETYLSALICYLIC ACID SRT [Concomitant]
  5. ACETYLSALICYLIC ACID SRT [Concomitant]
  6. VITAMIN B-12 [Concomitant]
     Route: 050
  7. VITAMIN B-12 [Concomitant]
  8. BIOTIN [Concomitant]
  9. BIOTIN [Concomitant]
  10. MUCOSYL [Concomitant]
  11. MUCOSYL [Concomitant]
  12. ANTIDIARRHOEAL MICROORGANISMS [Concomitant]
  13. FOLTX [Concomitant]
  14. FOLTX [Concomitant]
  15. ALL OTHER THERAPEUTIC PRODUCTS [Concomitant]
  16. ALL OTHER THERAPEUTIC PRODUCTS [Concomitant]
  17. METHOTREXATE [Concomitant]
  18. METHOTREXATE [Concomitant]
  19. VERAMYST [Concomitant]
     Route: 045
  20. VERAMYST [Concomitant]
     Route: 045
  21. PRILOSEC [Concomitant]
  22. PRILOSEC [Concomitant]
  23. MONTELUKAST SODIUM [Concomitant]
  24. MONTELUKAST SODIUM [Concomitant]
  25. CIMETIDINE [Concomitant]
  26. CIMETIDINE [Concomitant]
  27. VITAMIN D [Concomitant]
  28. VITAMIN D [Concomitant]
  29. OMEGA-3 MARINE TRIGLYCERIDES [Concomitant]
  30. OMEGA-3 MARINE TRIGLYCERIDES [Concomitant]
  31. SIMVASTATIN [Concomitant]
  32. SIMVASTATIN [Concomitant]
  33. IPRATROPIUM BROMIDE [Concomitant]
     Route: 050
  34. XOPENEX [Concomitant]
     Route: 050

REACTIONS (1)
  - PNEUMONIA [None]
